FAERS Safety Report 12761874 (Version 9)
Quarter: 2017Q2

REPORT INFORMATION
  Report Type: Spontaneous
  Country: US (occurrence: US)
  Receive Date: 20160920
  Receipt Date: 20170425
  Transmission Date: 20170830
  Serious: Yes (Congenital Anomaly, Other)
  Sender: FDA-Public Use
  Company Number: PHEH2016US023742

PATIENT
  Sex: Male

DRUGS (2)
  1. ZOFRAN ODT [Suspect]
     Active Substance: ONDANSETRON HYDROCHLORIDE
     Indication: FOETAL EXPOSURE DURING PREGNANCY
     Dosage: MOTHER^S DOSE: 4 MG, UNK
     Route: 064
  2. ZOFRAN [Suspect]
     Active Substance: ONDANSETRON HYDROCHLORIDE
     Indication: FOETAL EXPOSURE DURING PREGNANCY
     Route: 064

REACTIONS (37)
  - Brachydactyly [Unknown]
  - Wheezing [Unknown]
  - Ventricular septal defect [Unknown]
  - Laevocardia [Unknown]
  - Respiratory distress [Unknown]
  - Injury [Unknown]
  - Pyrexia [Unknown]
  - Bronchopulmonary dysplasia [Unknown]
  - Retinopathy of prematurity [Unknown]
  - Infantile apnoea [Unknown]
  - Developmental delay [Unknown]
  - Cardiac murmur [Unknown]
  - Atrial septal defect [Unknown]
  - Patent ductus arteriosus [Unknown]
  - Urethral meatus stenosis [Unknown]
  - Upper respiratory tract infection [Unknown]
  - Premature baby [Unknown]
  - Bronchiolitis [Unknown]
  - Conjunctivitis [Unknown]
  - Bradycardia neonatal [Unknown]
  - Pain [Unknown]
  - Dermatitis [Unknown]
  - Pharyngitis [Unknown]
  - Otitis media acute [Unknown]
  - Hypospadias [Unknown]
  - Foetal exposure during pregnancy [Unknown]
  - Anhedonia [Unknown]
  - Gastroenteritis [Unknown]
  - Congenital anomaly [Unknown]
  - Chordee [Unknown]
  - Neonatal pneumonia [Unknown]
  - Dysuria [Unknown]
  - Intraventricular haemorrhage neonatal [Unknown]
  - Rhinitis allergic [Unknown]
  - Gastrooesophageal reflux disease [Unknown]
  - Respiratory syncytial virus infection [Unknown]
  - Diarrhoea [Unknown]

NARRATIVE: CASE EVENT DATE: 20061222
